FAERS Safety Report 4316643-X (Version None)
Quarter: 2004Q1

REPORT INFORMATION
  Report Type: 
  Country: None (occurrence: None)
  Receive Date: 20040311
  Receipt Date: 20040226
  Transmission Date: 20041129
  Serious: Yes (Other)
  Sender: FDA-Public Use
  Company Number: A0500156A

PATIENT
  Age: 53 Year
  Sex: Female

DRUGS (5)
  1. NICORETTE [Suspect]
     Indication: EX-SMOKER
     Dosage: 4 MG/TRANSBUCCAL
     Dates: start: 19940101
  2. NICODERM CQ [Suspect]
     Indication: EX-SMOKER
     Dosage: 7 MG/TRANSDERMAL
     Route: 062
  3. WELLBUTRIN [Suspect]
     Indication: BIPOLAR DISORDER
     Dosage: ORAL
     Dates: start: 20010101
  4. ATOMOXETINE HYDROCHLORIDE [Concomitant]
  5. CLONAZEPAM [Concomitant]

REACTIONS (11)
  - CONDITION AGGRAVATED [None]
  - DEPRESSION [None]
  - DIZZINESS [None]
  - DRUG DEPENDENCE [None]
  - DRY MOUTH [None]
  - FEELING ABNORMAL [None]
  - IRRITABILITY [None]
  - LYMPHOMA [None]
  - NEOPLASM RECURRENCE [None]
  - PALLOR [None]
  - PHARYNGOLARYNGEAL PAIN [None]
